FAERS Safety Report 11646668 (Version 2)
Quarter: 2016Q2

REPORT INFORMATION
  Report Type: Spontaneous
  Country: US (occurrence: US)
  Receive Date: 20151020
  Receipt Date: 20160429
  Transmission Date: 20160815
  Serious: No
  Sender: FDA-Public Use
  Company Number: US-ROCHE-1619452

PATIENT
  Sex: Female
  Weight: 127.12 kg

DRUGS (1)
  1. ESBRIET [Suspect]
     Active Substance: PIRFENIDONE
     Indication: IDIOPATHIC PULMONARY FIBROSIS
     Dosage: 2403 MG TOTAL DAILY
     Route: 048
     Dates: start: 20150409

REACTIONS (1)
  - Diarrhoea [Unknown]
